FAERS Safety Report 12174585 (Version 3)
Quarter: 2016Q2

REPORT INFORMATION
  Report Type: Spontaneous
  Country: GB (occurrence: GB)
  Receive Date: 20160312
  Receipt Date: 20160429
  Transmission Date: 20160815
  Serious: Yes (Hospitalization, Other)
  Sender: FDA-Public Use
  Company Number: GB-AMGEN-GBRSP2016030481

PATIENT
  Age: 58 Year
  Sex: Male

DRUGS (1)
  1. ENBREL [Suspect]
     Active Substance: ETANERCEPT
     Indication: PRODUCT USED FOR UNKNOWN INDICATION
     Dosage: 25 MG, TWICE WEEKLY
     Route: 058

REACTIONS (10)
  - Malaise [Unknown]
  - Insomnia [Unknown]
  - Vertigo [Unknown]
  - Frustration tolerance decreased [Unknown]
  - Nervous system disorder [Unknown]
  - Dyskinesia [Unknown]
  - Lower respiratory tract infection [Unknown]
  - Pain [Unknown]
  - Skin discolouration [Unknown]
  - Decreased appetite [Unknown]

NARRATIVE: CASE EVENT DATE: 2015
